FAERS Safety Report 22145959 (Version 1)
Quarter: 2023Q1

REPORT INFORMATION
  Report Type: Spontaneous
  Country: US (occurrence: US)
  Receive Date: 20230328
  Receipt Date: 20230328
  Transmission Date: 20230418
  Serious: Yes (Life-Threatening, Hospitalization, Other)
  Sender: FDA-Public Use
  Company Number: US-MLMSERVICE-20230309-4150216-1

PATIENT
  Age: 80 Year
  Sex: Female

DRUGS (2)
  1. VANCOMYCIN [Suspect]
     Active Substance: VANCOMYCIN
     Indication: Antibiotic prophylaxis
     Dosage: UNKNOWN
     Route: 065
  2. CEFEPIME [Concomitant]
     Active Substance: CEFEPIME HYDROCHLORIDE
     Indication: Antibiotic prophylaxis
     Dosage: UNKNOWN
     Route: 065

REACTIONS (3)
  - Stress cardiomyopathy [Recovered/Resolved]
  - Cardiac arrest [Recovered/Resolved]
  - Vancomycin infusion reaction [Recovered/Resolved]
